FAERS Safety Report 9616625 (Version 2)
Quarter: 2013Q4

REPORT INFORMATION
  Report Type: Spontaneous
  Country: US (occurrence: US)
  Receive Date: 20131011
  Receipt Date: 20131011
  Transmission Date: 20140711
  Serious: No
  Sender: FDA-Public Use
  Company Number: US-PURDUE-USA-2013-0100408

PATIENT
  Sex: Male

DRUGS (2)
  1. BUTRANS [Suspect]
     Indication: PAIN
     Dosage: 20 MCG/HR, UNK
     Route: 062
     Dates: start: 201210
  2. TERBINAFINE                        /00992602/ [Concomitant]
     Indication: FUNGAL INFECTION

REACTIONS (11)
  - Wrong technique in drug usage process [Unknown]
  - Application site scar [Unknown]
  - Fungal infection [Unknown]
  - Dermatitis contact [Unknown]
  - Application site rash [Unknown]
  - Application site pruritus [Unknown]
  - Application site erythema [Unknown]
  - Application site irritation [Unknown]
  - Application site vesicles [Unknown]
  - Product adhesion issue [Unknown]
  - Application site reaction [Unknown]
